FAERS Safety Report 8557432-X (Version None)
Quarter: 2012Q3

REPORT INFORMATION
  Report Type: 
  Country: None (occurrence: None)
  Receive Date: 20120801
  Receipt Date: 20120723
  Transmission Date: 20120928
  Serious: Yes (Hospitalization, Other)
  Sender: FDA-Public Use
  Company Number: TR-ELI_LILLY_AND_COMPANY-TR201207008474

PATIENT
  Age: 68 Year
  Sex: Female

DRUGS (2)
  1. GEMCITABINE HYDROCHLORIDE [Suspect]
     Indication: LUNG CANCER METASTATIC
     Dosage: UNK
  2. CISPLATIN [Concomitant]
     Indication: LUNG CANCER METASTATIC
     Dosage: UNK

REACTIONS (1)
  - PANCREATITIS ACUTE [None]
